FAERS Safety Report 9668657 (Version 2)
Quarter: 2013Q4

REPORT INFORMATION
  Report Type: Spontaneous
  Country: AR (occurrence: AR)
  Receive Date: 20131105
  Receipt Date: 20131112
  Transmission Date: 20140711
  Serious: Yes (Other)
  Sender: FDA-Public Use
  Company Number: AR-AMGEN-ARGSP2013077635

PATIENT
  Age: 75 Year
  Sex: Male

DRUGS (1)
  1. ENBREL [Suspect]
     Indication: RHEUMATOID ARTHRITIS
     Dosage: 50 MG, WEEKLY
     Route: 065
     Dates: start: 20100611

REACTIONS (5)
  - Rectal haemorrhage [Unknown]
  - Haemobilia [Unknown]
  - Angiopathy [Recovered/Resolved]
  - Aortic aneurysm [Unknown]
  - Bone pain [Not Recovered/Not Resolved]
